FAERS Safety Report 6977567-2 (Version None)
Quarter: 2010Q3

REPORT INFORMATION
  Report Type: 
  Country: None (occurrence: None)
  Receive Date: 20100912
  Receipt Date: 20100831
  Transmission Date: 20110219
  Serious: Yes (Hospitalization)
  Sender: FDA-Public Use
  Company Number: US-JNJFOC-20100800090

PATIENT
  Sex: Female
  Weight: 38 kg

DRUGS (18)
  1. REMICADE [Suspect]
     Indication: CROHN'S DISEASE
     Route: 042
  2. ACETAMINOPHEN [Concomitant]
  3. CHOLECALCIFEROL [Concomitant]
  4. PANTOPRAZOLE [Concomitant]
  5. ABSORBASE [Concomitant]
  6. HYDROCORTISONE VALERATE [Concomitant]
  7. SODIUM CHLORIDE [Concomitant]
  8. 5-ASA [Concomitant]
  9. BUDESONIDE [Concomitant]
  10. PROBIOTICS [Concomitant]
  11. ASCORBIC ACID [Concomitant]
  12. CALCIUM CARBONATE [Concomitant]
  13. FERROUS SULFATE [Concomitant]
  14. POLYETHYLENE GLYCOL [Concomitant]
  15. VITAMIN D [Concomitant]
  16. MULTI-VITAMINS [Concomitant]
  17. HUMIRA [Concomitant]
     Indication: CROHN'S DISEASE
  18. FLUCONAZOLE [Concomitant]

REACTIONS (2)
  - ABSCESS BACTERIAL [None]
  - CROHN'S DISEASE [None]
